FAERS Safety Report 13372153 (Version 1)
Quarter: 2017Q1

REPORT INFORMATION
  Report Type: Spontaneous
  Country: US (occurrence: US)
  Receive Date: 20170324
  Receipt Date: 20170324
  Transmission Date: 20170429
  Serious: Yes (Hospitalization)
  Sender: FDA-Public Use
  Company Number: None

PATIENT
  Age: 47 Year
  Sex: Female

DRUGS (14)
  1. BACLOFEN. [Concomitant]
     Active Substance: BACLOFEN
  2. IBUPROFEN. [Concomitant]
     Active Substance: IBUPROFEN
  3. ALPRAZOLAM ER [Concomitant]
     Active Substance: ALPRAZOLAM
  4. OMEPRAZOLE. [Concomitant]
     Active Substance: OMEPRAZOLE
  5. COPAXONE [Suspect]
     Active Substance: GLATIRAMER ACETATE
     Indication: MULTIPLE SCLEROSIS
     Dosage: ?          OTHER FREQUENCY:INJECT;?
     Route: 058
  6. OXAARBAZEPINE [Concomitant]
  7. BUTALBITAL COMPOUND [Concomitant]
     Active Substance: ASPIRIN\BUTALBITAL\CAFFEINE
  8. MULTIVITMANS [Concomitant]
  9. TRAZODONE [Concomitant]
     Active Substance: TRAZODONE HYDROCHLORIDE
  10. GABAPENTIN. [Concomitant]
     Active Substance: GABAPENTIN
  11. FLUXETINE HCL [Concomitant]
  12. BENZONATATE. [Concomitant]
     Active Substance: BENZONATATE
  13. DICYCLOMINE HCL [Concomitant]
     Active Substance: DICYCLOMINE HYDROCHLORIDE
  14. OXYCODONE HYDROCHLORIDE. [Concomitant]
     Active Substance: OXYCODONE HYDROCHLORIDE

REACTIONS (1)
  - Hospitalisation [None]
